FAERS Safety Report 21790778 (Version 3)
Quarter: 2023Q1

REPORT INFORMATION
  Report Type: Report from Study
  Country: US (occurrence: US)
  Receive Date: 20221228
  Receipt Date: 20230127
  Transmission Date: 20230418
  Serious: Yes (Other)
  Sender: FDA-Public Use
  Company Number: US-CLOVIS ONCOLOGY-CLO-2022-001323

PATIENT
  Sex: Female

DRUGS (3)
  1. RUBRACA [Suspect]
     Active Substance: RUCAPARIB CAMSYLATE
     Indication: Ovarian cancer
     Dosage: 300 MILLIGRAM, BID
     Route: 048
     Dates: start: 20221128, end: 20230111
  2. RUBRACA [Suspect]
     Active Substance: RUCAPARIB CAMSYLATE
     Indication: Ovarian cancer
     Dosage: 600 MILLIGRAM, BID
     Route: 048
     Dates: start: 202210
  3. DULOXETINE [Concomitant]
     Active Substance: DULOXETINE
     Indication: Depression
     Dosage: UNK

REACTIONS (18)
  - Unresponsive to stimuli [Unknown]
  - Pain [Unknown]
  - Loss of personal independence in daily activities [Unknown]
  - Gait disturbance [Recovering/Resolving]
  - Balance disorder [Not Recovered/Not Resolved]
  - Confusional state [Recovering/Resolving]
  - Feeling abnormal [Unknown]
  - Aphasia [Unknown]
  - Disturbance in attention [Unknown]
  - Head injury [Unknown]
  - Grip strength decreased [Unknown]
  - Fall [Unknown]
  - General physical health deterioration [Unknown]
  - Illness [Unknown]
  - Malaise [Unknown]
  - Drug hypersensitivity [Unknown]
  - Fatigue [Not Recovered/Not Resolved]
  - Decreased appetite [Unknown]

NARRATIVE: CASE EVENT DATE: 20220101
